FAERS Safety Report 6598416-0 (Version None)
Quarter: 2010Q1

REPORT INFORMATION
  Report Type: 
  Country: None (occurrence: None)
  Receive Date: 20100224
  Receipt Date: 20050204
  Transmission Date: 20100710
  Serious: No
  Sender: FDA-Public Use
  Company Number: US-ALLERGAN-200501357

PATIENT
  Sex: Female

DRUGS (3)
  1. BOTOX COSMETIC [Suspect]
     Indication: SKIN WRINKLING
     Dosage: INJECTED INTO GLABELLAR AND PERIOCULAR
     Route: 030
  2. MOTRIN [Concomitant]
     Indication: ARTHRITIS
  3. VITAMINS NOS [Concomitant]
     Indication: MEDICAL DIET

REACTIONS (4)
  - ASTHENIA [None]
  - HEADACHE [None]
  - HYPOAESTHESIA [None]
  - TREMOR [None]
